FAERS Safety Report 10971828 (Version 1)
Quarter: 2015Q1

REPORT INFORMATION
  Report Type: Spontaneous
  Country: IR (occurrence: IR)
  Receive Date: 20150331
  Receipt Date: 20150331
  Transmission Date: 20150721
  Serious: Yes (Hospitalization, Other)
  Sender: FDA-Public Use
  Company Number: IR-BAUSCH-BL-2015-010023

PATIENT
  Age: 31 Year
  Sex: Male

DRUGS (1)
  1. DEXAMETHASONE. [Suspect]
     Active Substance: DEXAMETHASONE
     Indication: WEIGHT INCREASED

REACTIONS (11)
  - Chest wall mass [Recovered/Resolved]
  - Somnolence [None]
  - Seizure [None]
  - Muscular weakness [None]
  - Oral candidiasis [Recovered/Resolved]
  - Abdominal distension [Recovered/Resolved]
  - Skin striae [Recovered/Resolved]
  - Cushingoid [None]
  - Brain abscess [Recovered/Resolved]
  - Oedema peripheral [Recovered/Resolved]
  - Lipohypertrophy [None]
